FAERS Safety Report 8279759-1 (Version None)
Quarter: 2012Q2

REPORT INFORMATION
  Report Type: 
  Country: None (occurrence: None)
  Receive Date: 20120412
  Receipt Date: 20100825
  Transmission Date: 20120825
  Serious: No
  Sender: FDA-Public Use
  Company Number: US-ASTRAZENECA-2009SE31888

PATIENT
  Age: 67 Year
  Sex: Female
  Weight: 74.8 kg

DRUGS (10)
  1. ZETIA [Concomitant]
  2. PRAMIPREXOLE [Concomitant]
  3. LEVOXYL [Concomitant]
     Indication: THYROID DISORDER
  4. LISINOPRIL AND HYDROCHLOROTHIAZIDE [Concomitant]
  5. LISINOPRIL [Concomitant]
  6. NEXIUM [Suspect]
     Indication: GASTROOESOPHAGEAL REFLUX DISEASE
     Route: 048
  7. LIPITOR [Concomitant]
  8. ATENOLOL [Concomitant]
  9. CLONAZEPAM [Concomitant]
  10. METFORMIN HCL [Concomitant]

REACTIONS (4)
  - ARTERIAL THROMBOSIS LIMB [None]
  - NAUSEA [None]
  - DYSGEUSIA [None]
  - RETCHING [None]
